FAERS Safety Report 10420837 (Version 1)
Quarter: 2014Q3

REPORT INFORMATION
  Report Type: Spontaneous
  Country: US (occurrence: None)
  Receive Date: 20140829
  Receipt Date: 20140829
  Transmission Date: 20150326
  Serious: No
  Sender: FDA-Public Use
  Company Number: None

PATIENT
  Age: 76 Year
  Sex: Female

DRUGS (1)
  1. CAPECITABINE 500 MG [Suspect]
     Active Substance: CAPECITABINE
     Indication: PANCREATIC CARCINOMA
     Dosage: 1000 MG BID PO 5 DAYS/WEEK
     Route: 048
     Dates: start: 20140811

REACTIONS (1)
  - Nausea [None]

NARRATIVE: CASE EVENT DATE: 20140811
